FAERS Safety Report 6946795-4 (Version None)
Quarter: 2010Q3

REPORT INFORMATION
  Report Type: 
  Country: None (occurrence: None)
  Receive Date: 20100827
  Receipt Date: 20090814
  Transmission Date: 20110219
  Serious: No
  Sender: FDA-Public Use
  Company Number: US-ABBOTT-09P-163-0591956-00

PATIENT
  Sex: Female
  Weight: 50.848 kg

DRUGS (2)
  1. NIASPAN [Suspect]
     Indication: BLOOD CHOLESTEROL INCREASED
     Route: 048
     Dates: start: 20090514, end: 20090514
  2. ASPIRIN [Concomitant]
     Indication: PROPHYLAXIS

REACTIONS (5)
  - ERYTHEMA [None]
  - PRURITUS [None]
  - RASH [None]
  - SKIN BURNING SENSATION [None]
  - SWELLING [None]
